FAERS Safety Report 4462589-6 (Version None)
Quarter: 2004Q3

REPORT INFORMATION
  Report Type: 
  Country: None (occurrence: None)
  Receive Date: 20040928
  Receipt Date: 20040916
  Transmission Date: 20050211
  Serious: Yes (Hospitalization)
  Sender: FDA-Public Use
  Company Number: 200410477BFR

PATIENT
  Age: 83 Year
  Sex: Male
  Weight: 61 kg

DRUGS (1)
  1. CIPROFLOXACIN [Suspect]
     Indication: URINARY TRACT INFECTION STAPHYLOCOCCAL
     Dosage: 1000 MG, TOTAL DAILY, ORAL
     Route: 048
     Dates: start: 20030530, end: 20030606

REACTIONS (2)
  - CONDITION AGGRAVATED [None]
  - RENAL FAILURE ACUTE [None]
